FAERS Safety Report 18652809 (Version 4)
Quarter: 2021Q1

REPORT INFORMATION
  Report Type: Report from Study
  Country: NO (occurrence: NO)
  Receive Date: 20201223
  Receipt Date: 20210118
  Transmission Date: 20210419
  Serious: Yes (Hospitalization)
  Sender: FDA-Public Use
  Company Number: NO-ROCHE-2606313

PATIENT
  Age: 54 Year
  Sex: Female
  Weight: 54 kg

DRUGS (21)
  1. TARGINIQ ER [Concomitant]
     Active Substance: NALOXONE HYDROCHLORIDE\OXYCODONE HYDROCHLORIDE
     Indication: PAIN
     Dosage: 10/5 MG X 2
     Dates: start: 20200609
  2. ATEZOLIZUMAB. [Suspect]
     Active Substance: ATEZOLIZUMAB
     Route: 042
     Dates: start: 20200715
  3. LAXOBERAL [Concomitant]
     Active Substance: SODIUM PICOSULFATE
     Indication: CONSTIPATION
     Dosage: 10 DROPS
     Dates: start: 201909
  4. VANCOMYCIN [Concomitant]
     Active Substance: VANCOMYCIN
  5. HIPREX (NORWAY) [Concomitant]
     Dates: start: 20201217, end: 20201228
  6. LYRICA [Concomitant]
     Active Substance: PREGABALIN
     Indication: PAIN
     Dosage: 25 MG*2
     Dates: start: 20200619
  7. NITROFURANTOIN. [Concomitant]
     Active Substance: NITROFURANTOIN
     Dates: start: 20201229
  8. QUETIAPINE. [Concomitant]
     Active Substance: QUETIAPINE
     Dates: start: 202001
  9. OXYCONTIN [Concomitant]
     Active Substance: OXYCODONE HYDROCHLORIDE
     Indication: PAIN
     Dates: start: 202002
  10. PACLITAXEL. [Suspect]
     Active Substance: PACLITAXEL
     Indication: CERVIX CARCINOMA RECURRENT
     Dosage: DATE OF MOST RECENT DOSE OF PACLTIXAEL PRIOR TO URINARY INFECTION DUE TO KLEBSIELLA PNEUMONIAE, CLOS
     Route: 042
     Dates: start: 20200508
  11. IMOVANE [Concomitant]
     Active Substance: ZOPICLONE
     Dates: start: 201911
  12. SOMAC [Concomitant]
     Active Substance: PANTOPRAZOLE SODIUM
     Dates: start: 20201021
  13. ATEZOLIZUMAB. [Suspect]
     Active Substance: ATEZOLIZUMAB
     Indication: CERVIX CARCINOMA RECURRENT
     Dosage: ON DAY 1?DATE OF MOST RECENT DOSE OF ATEZOLIZUMAB PRIOR TO URINARY INFECTION DUE TO KLEBSIELLA PNEUM
     Route: 041
     Dates: start: 20200507
  14. BEVACIZUMAB. [Suspect]
     Active Substance: BEVACIZUMAB
     Indication: CERVIX CARCINOMA RECURRENT
     Dosage: ON DAY 1?DATE OF MOST RECENT DOSE OF BEVACIZUMAB PRIOR TO URINARY INFECTION DUE TO KLEBSIELLA PNEUMO
     Route: 042
     Dates: start: 20200507
  15. BEVACIZUMAB. [Suspect]
     Active Substance: BEVACIZUMAB
     Route: 042
     Dates: start: 20200715, end: 20200715
  16. CISPLATIN. [Suspect]
     Active Substance: CISPLATIN
     Indication: CERVIX CARCINOMA RECURRENT
     Dosage: DATE OF MOST RECENT DOSE OF CISPLATIN PRIOR TO URINARY INFECTION DUE TO KLEBSIELLA PNEUMONIAE, CLOST
     Route: 042
     Dates: start: 20200508
  17. TRIMETHOPRIM. [Concomitant]
     Active Substance: TRIMETHOPRIM
     Dates: start: 20200908, end: 20201216
  18. CISPLATIN. [Suspect]
     Active Substance: CISPLATIN
     Route: 065
     Dates: start: 20200716, end: 20200716
  19. PACLITAXEL. [Suspect]
     Active Substance: PACLITAXEL
     Route: 065
     Dates: start: 20200716, end: 20200716
  20. CARBOPLATIN. [Suspect]
     Active Substance: CARBOPLATIN
     Indication: CERVIX CARCINOMA RECURRENT
     Dosage: AUC 5?ON 11/NOV/2020, SHE RECEIVED MOST RECENT DOSE OF CARBOPLATIN PRIOR TO URINARY RETENTION AND UR
     Route: 042
     Dates: start: 20200820
  21. PANODIL [Concomitant]
     Active Substance: ACETAMINOPHEN
     Indication: PAIN
     Dates: start: 201909

REACTIONS (6)
  - Clostridial infection [Recovered/Resolved]
  - Proteinuria [Not Recovered/Not Resolved]
  - Urinary tract infection bacterial [Recovered/Resolved]
  - Urinary retention [Recovered/Resolved]
  - Thrombosis [Recovered/Resolved]
  - Urosepsis [Recovered/Resolved]

NARRATIVE: CASE EVENT DATE: 20200519
